FAERS Safety Report 8256158-X (Version None)
Quarter: 2012Q1

REPORT INFORMATION
  Report Type: 
  Country: None (occurrence: None)
  Receive Date: 20120329
  Receipt Date: 20120316
  Transmission Date: 20120608
  Serious: Yes (Hospitalization, Other)
  Sender: FDA-Public Use
  Company Number: 2012P1010573

PATIENT
  Age: 46 Year
  Sex: Male

DRUGS (2)
  1. FAMOTIDINE [Suspect]
     Dosage: PO
     Route: 048
  2. HAY FEVER RELIEF [Concomitant]

REACTIONS (3)
  - EOSINOPHIL COUNT INCREASED [None]
  - NEUTROPHIL COUNT DECREASED [None]
  - EOSINOPHIL PERCENTAGE INCREASED [None]
